FAERS Safety Report 15903894 (Version 1)
Quarter: 2019Q1

REPORT INFORMATION
  Report Type: Spontaneous
  Country: DE (occurrence: DE)
  Receive Date: 20190204
  Receipt Date: 20190204
  Transmission Date: 20190417
  Serious: Yes (Hospitalization)
  Sender: FDA-Public Use
  Company Number: DE-ACCORD-105449

PATIENT
  Age: 72 Year
  Sex: Female

DRUGS (6)
  1. TRIMIPRAMINE [Concomitant]
     Active Substance: TRIMIPRAMINE
     Dosage: 100 MG, 0-0-0-1
  2. LIORESAL [Concomitant]
     Active Substance: BACLOFEN
  3. LISIBETA COMP [Concomitant]
     Dosage: 20/12.5 MG, 1-0-0-0
  4. PANTOPRAZOLE [Concomitant]
     Active Substance: PANTOPRAZOLE
     Dosage: 40 MG, 1-0-0-0
  5. CLOPIDOGREL [Suspect]
     Active Substance: CLOPIDOGREL BISULFATE
     Indication: PRODUCT USED FOR UNKNOWN INDICATION
     Dosage: 75 MG, 1-0-0-0
  6. TORASEMIDE [Concomitant]
     Active Substance: TORSEMIDE
     Dosage: 10 MG, 0.5-0.5-0-0

REACTIONS (2)
  - General physical health deterioration [Unknown]
  - Fatigue [Unknown]
